FAERS Safety Report 22160381 (Version 1)
Quarter: 2023Q1

REPORT INFORMATION
  Report Type: Spontaneous
  Country: JP (occurrence: JP)
  Receive Date: 20230331
  Receipt Date: 20230331
  Transmission Date: 20230417
  Serious: Yes (Other)
  Sender: FDA-Public Use
  Company Number: JP-SA-2023SA095685

PATIENT
  Age: 10 Month
  Sex: Female
  Weight: 8.8 kg

DRUGS (8)
  1. SABRIL [Suspect]
     Active Substance: VIGABATRIN
     Indication: Infantile spasms
     Dosage: 440 MG/DAY, BID
     Route: 048
     Dates: start: 20211025, end: 20211227
  2. SABRIL [Suspect]
     Active Substance: VIGABATRIN
     Dosage: UNK UNK, BID
     Route: 048
     Dates: start: 20211228, end: 20220216
  3. SABRIL [Suspect]
     Active Substance: VIGABATRIN
     Dosage: UNK UNK, BID
     Route: 048
     Dates: start: 20220217
  4. VIMPAT [Concomitant]
     Active Substance: LACOSAMIDE
     Indication: Product used for unknown indication
     Dosage: DAILY DOSE: 20 MG
     Route: 048
     Dates: start: 20211008, end: 20211010
  5. VIMPAT [Concomitant]
     Active Substance: LACOSAMIDE
     Dosage: DAILY DOSE: 40 MG
     Route: 048
     Dates: start: 20211011, end: 20211013
  6. VIMPAT [Concomitant]
     Active Substance: LACOSAMIDE
     Dosage: DAILY DOSE: 60 MG
     Route: 048
     Dates: start: 20211014, end: 20211017
  7. VIMPAT [Concomitant]
     Active Substance: LACOSAMIDE
     Dosage: DAILY DOSE: 80 MG
     Route: 048
     Dates: start: 20211018, end: 20211019
  8. VIMPAT [Concomitant]
     Active Substance: LACOSAMIDE
     Dosage: DAILY DOSE: 100 MG
     Route: 048
     Dates: start: 20211020

REACTIONS (2)
  - Increased bronchial secretion [Recovering/Resolving]
  - Somnolence [Recovering/Resolving]

NARRATIVE: CASE EVENT DATE: 20211026
